FAERS Safety Report 10213395 (Version 1)
Quarter: 2014Q2

REPORT INFORMATION
  Report Type: Spontaneous
  Country: GB (occurrence: GB)
  Receive Date: 20140603
  Receipt Date: 20140603
  Transmission Date: 20141212
  Serious: Yes (Other)
  Sender: FDA-Public Use
  Company Number: GB-AMGEN-GBRSP2014040153

PATIENT
  Age: 83 Year
  Sex: Female

DRUGS (1)
  1. PROLIA [Suspect]
     Indication: OSTEOPOROSIS
     Dosage: UNK
     Route: 065

REACTIONS (20)
  - Atrial fibrillation [Unknown]
  - Abasia [Unknown]
  - Feeling hot [Unknown]
  - Peripheral swelling [Unknown]
  - Dry skin [Unknown]
  - Oedema peripheral [Unknown]
  - Hypoaesthesia [Unknown]
  - Dysuria [Unknown]
  - Urinary incontinence [Unknown]
  - Micturition urgency [Unknown]
  - Nocturia [Unknown]
  - Insomnia [Unknown]
  - Muscle spasms [Unknown]
  - Constipation [Unknown]
  - Mobility decreased [Unknown]
  - Abdominal pain [Unknown]
  - Groin pain [Unknown]
  - Arthralgia [Unknown]
  - Pain in extremity [Unknown]
  - Erythema [Unknown]
